FAERS Safety Report 16885754 (Version 2)
Quarter: 2019Q4

REPORT INFORMATION
  Report Type: Spontaneous
  Country: US (occurrence: US)
  Receive Date: 20191004
  Receipt Date: 20191104
  Transmission Date: 20200122
  Serious: No
  Sender: FDA-Public Use
  Company Number: US-BAUSCH-BL-2019-025932

PATIENT
  Sex: Female

DRUGS (3)
  1. LUMIFY [Suspect]
     Active Substance: BRIMONIDINE TARTRATE
     Dosage: STARTED ON LAST WEEK FROM THE FU REPORT
     Route: 047
     Dates: start: 201910
  2. LUMIFY [Suspect]
     Active Substance: BRIMONIDINE TARTRATE
     Indication: OCULAR HYPERAEMIA
     Dosage: PAST 3 MONTHS; USED IN THE MORNING ONCE A DAY
     Route: 047
     Dates: start: 201906, end: 2019
  3. LUMIFY [Suspect]
     Active Substance: BRIMONIDINE TARTRATE
     Dosage: SECOND BOTTLE; USED IN THE MORNING ONCE A DAY
     Route: 047
     Dates: start: 2019, end: 20190830

REACTIONS (2)
  - Vision blurred [Recovered/Resolved]
  - Product quality issue [Unknown]

NARRATIVE: CASE EVENT DATE: 2019
